FAERS Safety Report 6164248-0 (Version None)
Quarter: 2009Q2

REPORT INFORMATION
  Report Type: 
  Country: None (occurrence: None)
  Receive Date: 20090420
  Receipt Date: 20090403
  Transmission Date: 20091009
  Serious: Yes (Death)
  Sender: FDA-Public Use
  Company Number: 8044752

PATIENT
  Age: 81 Year
  Sex: Female

DRUGS (31)
  1. KEPPRA [Suspect]
     Dosage: 2500 MG PO
     Route: 048
     Dates: start: 20090217, end: 20090217
  2. KEPPRA [Suspect]
     Dosage: 1500 MG 2/D PO
     Route: 048
     Dates: start: 20090218, end: 20090222
  3. KEPPRA [Suspect]
     Dosage: 1500 MG 1/D IV
     Route: 042
     Dates: start: 20090221, end: 20090221
  4. KEPPRA [Suspect]
     Dosage: 1500 MG 2/D IV
     Route: 042
     Dates: start: 20090222, end: 20090226
  5. KEPPRA [Suspect]
     Dosage: 2000 MG 2/D IV
     Route: 042
     Dates: start: 20090226, end: 20090227
  6. VIMPAT [Suspect]
     Dosage: 200 MG 1/D  IV
     Route: 042
     Dates: start: 20090220, end: 20090220
  7. VIMPAT [Suspect]
     Dosage: 300 MG IV
     Route: 042
     Dates: start: 20090221, end: 20090222
  8. VIMPAT [Suspect]
     Dosage: 200 MG 2/D IV
     Route: 042
     Dates: start: 20090223, end: 20090226
  9. CEFTRIAXONE [Suspect]
     Indication: INFECTION
     Dosage: 2 G 1/D IV
     Route: 042
     Dates: start: 20090131, end: 20090209
  10. CIPROBAY [Suspect]
     Indication: INFECTION
     Dosage: 500 MG 2/D PO
     Route: 048
     Dates: start: 20090204, end: 20090216
  11. ROXITHROMYCINE [Suspect]
     Indication: INFECTION
     Dosage: 300 MG 1/D PO
     Route: 048
     Dates: start: 20090209, end: 20090216
  12. ERGENYL [Suspect]
     Dosage: 1200 MG 1/D IV
     Route: 042
     Dates: start: 20090211, end: 20090212
  13. ERGENYL [Suspect]
     Dosage: 800 MG 1/D IV
     Route: 042
     Dates: start: 20090215, end: 20090215
  14. ERGENYL [Suspect]
     Dosage: 500 MG 1/D PO
     Route: 048
     Dates: start: 20090215, end: 20090215
  15. ERGENYL [Suspect]
     Dosage: 500 MG 2/D PO
     Route: 048
     Dates: start: 20090216, end: 20090217
  16. ORFIRIL /00228501/ [Suspect]
     Dosage: 300 MG 1/D PO
     Route: 048
     Dates: start: 20090213, end: 20090213
  17. ORFIRIL [Suspect]
     Dosage: 300 MG 2/D PO
     Route: 048
     Dates: start: 20090214, end: 20090215
  18. PHENYDANTIN /00079301/ [Suspect]
     Dosage: 750 MG 1/D IV
     Route: 042
     Dates: start: 20090216, end: 20090218
  19. PHENYDANTIN /00079301/ [Suspect]
     Dosage: 100  MG 3/D PO
     Route: 048
     Dates: start: 20090219, end: 20090222
  20. PHENYDANTIN /00079301/ [Suspect]
     Dosage: 750 MG 1/D IV
     Route: 042
     Dates: start: 20090222, end: 20090226
  21. MERONEM /01250501/ [Suspect]
     Indication: INFECTION
     Dosage: 500 MG 1/D IV
     Route: 042
     Dates: start: 20090216, end: 20090216
  22. MERONEM /01250501/ [Suspect]
     Indication: INFECTION
     Dosage: 500 MG 3/D IV
     Route: 042
     Dates: start: 20090217, end: 20090223
  23. PIPRIL [Suspect]
     Indication: INFECTION
     Dosage: 4 G 3/D IV
     Route: 042
     Dates: start: 20090225, end: 20090227
  24. COMBACTAM [Suspect]
     Indication: INFECTION
     Dosage: 1 G 3/D IV
     Route: 042
     Dates: start: 20090225, end: 20090227
  25. ASPIRIN [Concomitant]
  26. AMLODIPINE [Concomitant]
  27. METOHEXAL /00376902/ [Concomitant]
  28. NEXIUM [Concomitant]
  29. ENALAPRIL [Concomitant]
  30. ESIDRIX [Concomitant]
  31. FRISIUM [Concomitant]

REACTIONS (2)
  - PROTHROMBIN TIME SHORTENED [None]
  - TRANSAMINASES INCREASED [None]
